FAERS Safety Report 9187682 (Version 2)
Quarter: 2013Q2

REPORT INFORMATION
  Report Type: Report from Study
  Country: CA (occurrence: CA)
  Receive Date: 20130325
  Receipt Date: 20130410
  Transmission Date: 20140414
  Serious: Yes (Other)
  Sender: FDA-Public Use
  Company Number: CA-PFIZER INC-2013093252

PATIENT
  Age: 48 Year
  Sex: Female
  Weight: 57.6 kg

DRUGS (6)
  1. MS CONTIN [Suspect]
     Indication: INTERVERTEBRAL DISC COMPRESSION
     Dosage: 50 MG, Q12H
     Route: 065
     Dates: start: 20130308, end: 20130308
  2. MS CONTIN [Suspect]
     Indication: SCOLIOSIS
  3. KADIAN [Suspect]
     Indication: INTERVERTEBRAL DISC COMPRESSION
     Dosage: 50 MG, UNK
     Dates: start: 20130308
  4. KADIAN [Suspect]
     Indication: SCOLIOSIS
  5. HYDROMORPH CONTIN [Concomitant]
     Dosage: 6 MG, Q12 H
  6. HYDROMORPH CONTIN [Concomitant]
     Dosage: 6 MG, 3X/DAY

REACTIONS (5)
  - Drug ineffective [Unknown]
  - Convulsion [Unknown]
  - Hypoaesthesia [Unknown]
  - Tremor [Unknown]
  - Feeling abnormal [Unknown]
